FAERS Safety Report 15246375 (Version 1)
Quarter: 2018Q3

REPORT INFORMATION
  Report Type: Spontaneous
  Country: US (occurrence: US)
  Receive Date: 20180806
  Receipt Date: 20180806
  Transmission Date: 20181010
  Serious: Yes (Other)
  Sender: FDA-Public Use
  Company Number: US-SA-2018SA210910

PATIENT

DRUGS (2)
  1. NICODERM CQ [Suspect]
     Active Substance: NICOTINE
     Route: 062
  2. NICORETTE [Suspect]
     Active Substance: NICOTINE

REACTIONS (3)
  - Nicotine dependence [Unknown]
  - Liver injury [Unknown]
  - Amnesia [Unknown]
